FAERS Safety Report 17429234 (Version 4)
Quarter: 2020Q3

REPORT INFORMATION
  Report Type: Spontaneous
  Country: US (occurrence: US)
  Receive Date: 20200218
  Receipt Date: 20200707
  Transmission Date: 20201102
  Serious: Yes (Other)
  Sender: FDA-Public Use
  Company Number: US-KYOWAKIRIN-2020BKK002189

PATIENT

DRUGS (1)
  1. CRYSVITA [Suspect]
     Active Substance: BUROSUMAB-TWZA
     Indication: HEREDITARY HYPOPHOSPHATAEMIC RICKETS
     Dosage: 90 MG, Q4W
     Route: 065

REACTIONS (3)
  - Hyperparathyroidism [Recovering/Resolving]
  - Blood phosphorus abnormal [Not Recovered/Not Resolved]
  - Vitamin D decreased [Recovered/Resolved]
